FAERS Safety Report 7876458-2 (Version None)
Quarter: 2011Q4

REPORT INFORMATION
  Report Type: 
  Country: None (occurrence: None)
  Receive Date: 20111031
  Receipt Date: 20111020
  Transmission Date: 20120403
  Serious: Yes (Other)
  Sender: FDA-Public Use
  Company Number: PHHY2011DE93429

PATIENT
  Sex: Female

DRUGS (2)
  1. MIRTAZAPINE [Concomitant]
  2. EXELON [Suspect]
     Dosage: 6 MG, BID
     Route: 048

REACTIONS (4)
  - FALL [None]
  - NAUSEA [None]
  - GAIT DISTURBANCE [None]
  - DIZZINESS [None]
